FAERS Safety Report 4295373-7 (Version None)
Quarter: 2004Q1

REPORT INFORMATION
  Report Type: 
  Country: None (occurrence: None)
  Receive Date: 20040216
  Receipt Date: 20030702
  Transmission Date: 20041129
  Serious: No
  Sender: FDA-Public Use
  Company Number: US-GLAXOSMITHKLINE-A0415766A

PATIENT
  Age: 7 Year
  Sex: Male

DRUGS (2)
  1. LAMICTAL [Suspect]
     Dosage: 125MG TWICE PER DAY
     Route: 048
     Dates: start: 20010101
  2. ALLERGY MEDICINE [Concomitant]

REACTIONS (2)
  - ANGER [None]
  - PHOTOSENSITIVITY REACTION [None]
